FAERS Safety Report 11429356 (Version 1)
Quarter: 2015Q3

REPORT INFORMATION
  Report Type: Spontaneous
  Country: GB (occurrence: GB)
  Receive Date: 20150828
  Receipt Date: 20150828
  Transmission Date: 20151125
  Serious: Yes (Other)
  Sender: FDA-Public Use
  Company Number: GB-TEVA-587419ACC

PATIENT
  Age: 61 Year
  Sex: Female

DRUGS (2)
  1. TRIMETHOPRIM. [Suspect]
     Active Substance: TRIMETHOPRIM
     Indication: KIDNEY INFECTION
     Dosage: 400 GRAM DAILY;
     Route: 048
     Dates: start: 20150803, end: 20150804
  2. DOXYCYCLINE. [Concomitant]
     Active Substance: DOXYCYCLINE
     Dosage: TAKEN 3 DAYS PRIOR TO STARTING TRIMETHOPRIM.

REACTIONS (5)
  - Paraesthesia [Recovering/Resolving]
  - Headache [Recovered/Resolved]
  - Nausea [Recovered/Resolved]
  - Decreased appetite [Recovering/Resolving]
  - Pyrexia [Recovering/Resolving]

NARRATIVE: CASE EVENT DATE: 20150803
